FAERS Safety Report 5644598-4 (Version None)
Quarter: 2008Q1

REPORT INFORMATION
  Report Type: 
  Country: None (occurrence: None)
  Receive Date: 20080229
  Receipt Date: 20070329
  Transmission Date: 20080703
  Serious: No
  Sender: FDA-Public Use
  Company Number: A0645237A

PATIENT
  Age: 25 Year
  Sex: Female

DRUGS (2)
  1. VALTREX [Suspect]
     Dosage: 1G UNKNOWN
     Route: 048
     Dates: start: 20000101
  2. NO CONCURRENT MEDICATION [Concomitant]

REACTIONS (1)
  - HERPES VIRUS INFECTION [None]
